FAERS Safety Report 9628666 (Version 2)
Quarter: 2013Q4

REPORT INFORMATION
  Report Type: Spontaneous
  Country: US (occurrence: US)
  Receive Date: 20131017
  Receipt Date: 20131106
  Transmission Date: 20140711
  Serious: Yes (Disabling, Other)
  Sender: FDA-Public Use
  Company Number: US-BAYER-2013-123008

PATIENT
  Age: 30 Year
  Sex: Female
  Weight: 48.98 kg

DRUGS (4)
  1. MIRENA [Suspect]
     Indication: CONTRACEPTION
     Dosage: 20 MCG/24HR, CONT
     Route: 015
     Dates: start: 20110914, end: 20110927
  2. SINGULAIR [Concomitant]
  3. ALLEGRA [Concomitant]
  4. CALCIUM [Concomitant]

REACTIONS (14)
  - Uterine perforation [None]
  - Genital haemorrhage [None]
  - Depression [None]
  - Device dislocation [None]
  - Infertility [None]
  - Ovarian cyst [None]
  - Endometriosis [None]
  - Emotional distress [None]
  - Pain [None]
  - Injury [None]
  - Internal injury [None]
  - Medical device discomfort [None]
  - Anxiety [None]
  - Fear [None]
